FAERS Safety Report 9474742 (Version 3)
Quarter: 2013Q4

REPORT INFORMATION
  Report Type: Spontaneous
  Country: GB (occurrence: GB)
  Receive Date: 20130823
  Receipt Date: 20131202
  Transmission Date: 20140711
  Serious: Yes (Death, Hospitalization)
  Sender: FDA-Public Use
  Company Number: GB-ASTRAZENECA-2013SE63817

PATIENT
  Age: 16 Month
  Sex: Male

DRUGS (1)
  1. SYNAGIS [Suspect]
     Dosage: RECEIVED 5 INJECTIONS 1 MONTHLY DOSES, STARTED IN OCT/NOV-2012 TIME
     Route: 030

REACTIONS (1)
  - Bronchopulmonary dysplasia [Fatal]
